FAERS Safety Report 24906375 (Version 2)
Quarter: 2025Q1

REPORT INFORMATION
  Report Type: Spontaneous
  Country: CA (occurrence: CA)
  Receive Date: 20250130
  Receipt Date: 20250331
  Transmission Date: 20250409
  Serious: Yes (Other)
  Sender: PFIZER
  Company Number: CA-PFIZER INC-202300451828

PATIENT
  Age: 12 Year
  Sex: Male
  Weight: 38.1 kg

DRUGS (2)
  1. NGENLA [Suspect]
     Active Substance: SOMATROGON-GHLA
     Indication: Growth hormone deficiency
     Dosage: 21 MG, WEEKLY, 60MG PREFILLED PENNEEDLE 32, 4MM
     Route: 058
     Dates: start: 20221121, end: 2023
  2. NGENLA [Suspect]
     Active Substance: SOMATROGON-GHLA
     Dosage: 28 MG, WEEKLY, 60MG PREFILLED PENNEEDLE 32, 4MM
     Route: 058

REACTIONS (2)
  - Epilepsy [Not Recovered/Not Resolved]
  - Off label use [Unknown]

NARRATIVE: CASE EVENT DATE: 20240101
